FAERS Safety Report 17256236 (Version 1)
Quarter: 2020Q1

REPORT INFORMATION
  Report Type: Spontaneous
  Country: AU (occurrence: AU)
  Receive Date: 20200110
  Receipt Date: 20200110
  Transmission Date: 20200409
  Serious: Yes (Hospitalization, Other)
  Sender: FDA-Public Use
  Company Number: AU-SUN PHARMACEUTICAL INDUSTRIES LTD-2019RR-232971

PATIENT
  Age: 48 Year
  Sex: Male

DRUGS (5)
  1. MONTELUKAST [Suspect]
     Active Substance: MONTELUKAST SODIUM
     Indication: MAST CELL ACTIVATION SYNDROME
     Dosage: 10 MILLIGRAM, UNK
     Route: 065
  2. CETIRIZINE [Suspect]
     Active Substance: CETIRIZINE HYDROCHLORIDE
     Indication: MAST CELL ACTIVATION SYNDROME
     Dosage: 10 MILLIGRAM, TID
     Route: 065
  3. ADRENALINE [Suspect]
     Active Substance: EPINEPHRINE
     Indication: ANAPHYLACTIC REACTION
     Dosage: 500 MICROGRAM, UNK
     Route: 042
  4. FEXOFENADINE [Suspect]
     Active Substance: FEXOFENADINE HYDROCHLORIDE
     Indication: MAST CELL ACTIVATION SYNDROME
     Dosage: 180 MILLIGRAM, UNK
     Route: 065
  5. PREDNISOLONE. [Suspect]
     Active Substance: PREDNISOLONE
     Indication: MAST CELL ACTIVATION SYNDROME
     Dosage: UNK
     Route: 065

REACTIONS (2)
  - Therapeutic product effect incomplete [Unknown]
  - Disease progression [Unknown]
